FAERS Safety Report 7751020-0 (Version None)
Quarter: 2011Q3

REPORT INFORMATION
  Report Type: 
  Country: None (occurrence: None)
  Receive Date: 20110914
  Receipt Date: 20110902
  Transmission Date: 20111222
  Serious: Yes (Other)
  Sender: FDA-Public Use
  Company Number: US-BAYER-201041422NA

PATIENT
  Age: 38 Year
  Sex: Female
  Weight: 77.098 kg

DRUGS (5)
  1. SUDAFED 12 HOUR [Concomitant]
  2. YASMIN [Suspect]
     Indication: ACNE
     Dosage: UNK
     Dates: start: 20020101, end: 20090101
  3. NAPROXEN (ALEVE) [Concomitant]
  4. YAZ [Suspect]
     Indication: ACNE
     Dosage: UNK
     Dates: start: 20020101, end: 20090101
  5. ACETAMINOPHEN [Concomitant]

REACTIONS (6)
  - CHOLECYSTITIS [None]
  - NAUSEA [None]
  - INJURY [None]
  - DISCOMFORT [None]
  - GALLBLADDER DISORDER [None]
  - MUSCULOSKELETAL PAIN [None]
